FAERS Safety Report 5385715-3 (Version None)
Quarter: 2007Q3

REPORT INFORMATION
  Report Type: 
  Country: None (occurrence: None)
  Receive Date: 20070712
  Receipt Date: 20070702
  Transmission Date: 20080115
  Serious: Yes (Hospitalization, Other)
  Sender: FDA-Public Use
  Company Number: US-PFIZER INC-2006150664

PATIENT
  Sex: Female
  Weight: 72.6 kg

DRUGS (12)
  1. CELEBREX [Suspect]
     Indication: ARTHRITIS
  2. BEXTRA [Suspect]
     Indication: ARTHRITIS
     Dates: start: 20011201
  3. VIOXX [Suspect]
     Indication: ARTHRITIS
     Route: 048
     Dates: start: 19990601, end: 20020428
  4. VICODIN [Concomitant]
     Indication: PAIN
  5. LOTENSIN [Concomitant]
     Indication: HYPERTENSION
     Dates: start: 20000225, end: 20021029
  6. LASIX [Concomitant]
     Indication: HYPERTENSION
     Dates: start: 20000101, end: 20070301
  7. FUROSEMIDE [Concomitant]
     Indication: HYPERTENSION
     Dates: start: 20020410, end: 20060801
  8. HYDROCHLOROTHIAZIDE [Concomitant]
     Indication: HYPERTENSION
     Dates: start: 20000225, end: 20061104
  9. NITROQUICK [Concomitant]
     Indication: HYPERTENSION
     Dates: start: 20020608, end: 20061109
  10. APAP TAB [Concomitant]
     Indication: PAIN
     Dates: start: 20010621, end: 20060102
  11. HYDROCODONE BITARTRATE [Concomitant]
     Indication: PAIN
     Dates: start: 20010621, end: 20060102
  12. SYNTHROID [Concomitant]
     Dates: start: 20001113, end: 20060907

REACTIONS (3)
  - CEREBROVASCULAR ACCIDENT [None]
  - DEEP VEIN THROMBOSIS [None]
  - MYOCARDIAL INFARCTION [None]
